FAERS Safety Report 13279640 (Version 1)
Quarter: 2017Q1

REPORT INFORMATION
  Report Type: Report from Study
  Country: US (occurrence: US)
  Receive Date: 20170301
  Receipt Date: 20170301
  Transmission Date: 20170428
  Serious: No
  Sender: FDA-Public Use
  Company Number: US-AMAG PHARMACEUTICALS, INC.-AMAG201600239

PATIENT

DRUGS (4)
  1. I.V. SOLUTIONS [Suspect]
     Active Substance: UNSPECIFIED INGREDIENT
     Indication: VOMITING
  2. I.V. SOLUTIONS [Suspect]
     Active Substance: UNSPECIFIED INGREDIENT
     Indication: NAUSEA
     Dosage: UNK
     Route: 042
     Dates: start: 20160217
  3. MAKENA [Suspect]
     Active Substance: HYDROXYPROGESTERONE CAPROATE
     Indication: PRODUCT USED FOR UNKNOWN INDICATION
     Dosage: UNK
     Dates: start: 20160104
  4. I.V. SOLUTIONS [Suspect]
     Active Substance: UNSPECIFIED INGREDIENT
     Indication: DIARRHOEA

REACTIONS (3)
  - Diarrhoea [Unknown]
  - Vomiting [Unknown]
  - Nausea [Unknown]

NARRATIVE: CASE EVENT DATE: 20160217
